FAERS Safety Report 6393364-3 (Version None)
Quarter: 2009Q4

REPORT INFORMATION
  Report Type: 
  Country: None (occurrence: None)
  Receive Date: 20091008
  Receipt Date: 20090925
  Transmission Date: 20100525
  Serious: Yes (Other)
  Sender: FDA-Public Use
  Company Number: US-PFIZER INC-2009275742

PATIENT
  Sex: Female
  Weight: 57 kg

DRUGS (4)
  1. PREMARIN [Suspect]
     Indication: HORMONE REPLACEMENT THERAPY
     Dosage: 0.625 MG, UNK
     Dates: start: 19880101, end: 19950101
  2. AYGESTIN [Suspect]
     Indication: HORMONE REPLACEMENT THERAPY
     Dosage: 5 MG, UNK
     Dates: start: 19900101, end: 19950101
  3. PREMPHASE 14/14 [Suspect]
     Indication: HORMONE REPLACEMENT THERAPY
     Dosage: 0.625 TO 5MG
     Dates: start: 19950801, end: 19970101
  4. PREMPHASE 14/14 [Suspect]
     Dosage: 0.625 TO 5MG
     Dates: start: 19971201

REACTIONS (1)
  - BREAST CANCER FEMALE [None]
